FAERS Safety Report 6749465-0 (Version None)
Quarter: 2010Q2

REPORT INFORMATION
  Report Type: 
  Country: None (occurrence: None)
  Receive Date: 20100601
  Receipt Date: 20100524
  Transmission Date: 20101027
  Serious: Yes (Other)
  Sender: FDA-Public Use
  Company Number: ES-ROCHE-705969

PATIENT
  Sex: Male

DRUGS (1)
  1. ROACTEMRA [Suspect]
     Indication: TUBERCULOSIS
     Route: 042
     Dates: start: 20091101

REACTIONS (2)
  - CYTOMEGALOVIRUS INFECTION [None]
  - RENAL FAILURE [None]
